FAERS Safety Report 4963597-9 (Version None)
Quarter: 2006Q1

REPORT INFORMATION
  Report Type: 
  Country: None (occurrence: None)
  Receive Date: 20060330
  Receipt Date: 20060316
  Transmission Date: 20060701
  Serious: Yes (Hospitalization)
  Sender: FDA-Public Use
  Company Number: 02100-JPN-06-0109

PATIENT
  Age: 70 Year
  Sex: Female

DRUGS (4)
  1. CILOSTAZOL [Suspect]
     Indication: ARTERIOSCLEROSIS
     Dosage: 200 MG, ORAL
     Route: 048
     Dates: start: 20050427, end: 20060107
  2. ROSIGLITAZONE [Concomitant]
  3. VOGLIBOSE [Concomitant]
  4. GLIBENCLAMIDE PLUS METFORMIN [Concomitant]

REACTIONS (1)
  - CORONARY ARTERY OCCLUSION [None]
